FAERS Safety Report 6582821-2 (Version None)
Quarter: 2010Q1

REPORT INFORMATION
  Report Type: 
  Country: None (occurrence: None)
  Receive Date: 20100216
  Receipt Date: 20100201
  Transmission Date: 20100710
  Serious: Yes (Life-Threatening, Hospitalization)
  Sender: FDA-Public Use
  Company Number: JP-PFIZER INC-2010019790

PATIENT
  Age: 66 Year
  Sex: Male
  Weight: 69.5 kg

DRUGS (12)
  1. SUNITINIB MALATE [Suspect]
     Indication: RENAL CELL CARCINOMA
     Dosage: 50 MG, 1X/DAY
     Route: 048
     Dates: start: 20090818, end: 20090902
  2. OXYCONTIN [Concomitant]
     Route: 048
     Dates: end: 20090902
  3. MAGNESIUM OXIDE [Concomitant]
     Route: 048
     Dates: end: 20090902
  4. LENDORMIN [Concomitant]
     Dosage: UNK
     Route: 048
  5. LIORESAL [Concomitant]
     Route: 048
     Dates: end: 20090902
  6. DECADRON [Concomitant]
     Route: 048
     Dates: end: 20090902
  7. CALONAL [Concomitant]
     Route: 048
     Dates: end: 20090902
  8. NOVAMIN [Concomitant]
     Route: 048
     Dates: end: 20090903
  9. MUCOSTA [Concomitant]
     Route: 048
     Dates: end: 20090902
  10. DIOVAN [Concomitant]
     Route: 048
     Dates: start: 20090823, end: 20090917
  11. TAKEPRON [Concomitant]
     Dosage: UNK
     Route: 048
     Dates: start: 20090823
  12. AMLODIPINE [Concomitant]
     Route: 048
     Dates: end: 20090917

REACTIONS (4)
  - ANAEMIA [None]
  - INAPPROPRIATE ANTIDIURETIC HORMONE SECRETION [None]
  - PLATELET COUNT DECREASED [None]
  - PNEUMONIA BACTERIAL [None]
